FAERS Safety Report 12202174 (Version 3)
Quarter: 2016Q2

REPORT INFORMATION
  Report Type: Spontaneous
  Country: ES (occurrence: ES)
  Receive Date: 20160322
  Receipt Date: 20160404
  Transmission Date: 20160815
  Serious: Yes (Death, Hospitalization)
  Sender: FDA-Public Use
  Company Number: ES-SA-2016SA054618

PATIENT
  Age: 73 Year
  Sex: Male
  Weight: 53 kg

DRUGS (8)
  1. LEUCOVORIN. [Suspect]
     Active Substance: LEUCOVORIN
     Indication: ADENOCARCINOMA OF COLON
     Route: 065
  2. OXALIPLATIN. [Suspect]
     Active Substance: OXALIPLATIN
     Indication: ADENOCARCINOMA OF COLON
     Route: 065
     Dates: end: 2013
  3. FLUOROURACIL. [Suspect]
     Active Substance: FLUOROURACIL
     Indication: ADENOCARCINOMA OF COLON
     Dosage: FLUOROURACIL WAS ADMINISTERED AS 400 MG/M2 BOLUS
  4. FLUOROURACIL. [Suspect]
     Active Substance: FLUOROURACIL
     Indication: ADENOCARCINOMA OF COLON
     Dosage: FLUOROURACIL WAS ADMINISTERED AS 400 MG/M2 BOLUS
     Dates: end: 2013
  5. FLUOROURACIL. [Suspect]
     Active Substance: FLUOROURACIL
     Indication: ADENOCARCINOMA OF COLON
     Dosage: FLUOROURACIL WAS ADMINISTERED AS 600 MG/M2
     Route: 065
     Dates: end: 2013
  6. FLUOROURACIL. [Suspect]
     Active Substance: FLUOROURACIL
     Indication: ADENOCARCINOMA OF COLON
     Dosage: FLUOROURACIL WAS ADMINISTERED AS 600 MG/M2
     Route: 065
  7. LEUCOVORIN. [Suspect]
     Active Substance: LEUCOVORIN
     Indication: ADENOCARCINOMA OF COLON
     Route: 065
     Dates: end: 2013
  8. OXALIPLATIN. [Suspect]
     Active Substance: OXALIPLATIN
     Indication: ADENOCARCINOMA OF COLON
     Route: 065

REACTIONS (13)
  - Oxygen saturation decreased [Fatal]
  - Rales [Fatal]
  - Organising pneumonia [Fatal]
  - Pyrexia [Fatal]
  - Tachypnoea [Fatal]
  - Lung infiltration [Fatal]
  - Sepsis [Fatal]
  - Cough [Fatal]
  - Productive cough [Fatal]
  - Tachycardia [Fatal]
  - Lung consolidation [Fatal]
  - Emphysema [Fatal]
  - Hypotension [Fatal]

NARRATIVE: CASE EVENT DATE: 2013
